FAERS Safety Report 18069045 (Version 3)
Quarter: 2020Q3

REPORT INFORMATION
  Report Type: Spontaneous
  Country: AT (occurrence: AT)
  Receive Date: 20200725
  Receipt Date: 20200805
  Transmission Date: 20201103
  Serious: Yes (Other)
  Sender: FDA-Public Use
  Company Number: NVSC2020AT208465

PATIENT
  Age: 63 Year
  Sex: Female
  Weight: 58 kg

DRUGS (9)
  1. DOXORUBICIN [Suspect]
     Active Substance: DOXORUBICIN
     Indication: T-CELL LYMPHOMA
  2. PREDNISONE. [Suspect]
     Active Substance: PREDNISONE
     Indication: ANAPLASTIC LARGE-CELL LYMPHOMA
  3. ADCETRIS [Suspect]
     Active Substance: BRENTUXIMAB VEDOTIN
     Indication: T-CELL LYMPHOMA
  4. ENDOXAN [Suspect]
     Active Substance: CYCLOPHOSPHAMIDE
     Indication: T-CELL LYMPHOMA
     Dosage: 6 CYCLES ADMINISTERED TOTAL; CHP REGIMEN
     Route: 065
  5. ENDOXAN [Suspect]
     Active Substance: CYCLOPHOSPHAMIDE
     Indication: ANAPLASTIC LARGE-CELL LYMPHOMA
  6. DOXORUBICIN [Suspect]
     Active Substance: DOXORUBICIN
     Indication: ANAPLASTIC LARGE-CELL LYMPHOMA
     Dosage: 6 CYCLES ADMINISTERED TOTAL; CHP REGIMEN
     Route: 065
  7. CYCLOPHOSPHAMIDE. [Suspect]
     Active Substance: CYCLOPHOSPHAMIDE
     Indication: PRODUCT USED FOR UNKNOWN INDICATION
     Dosage: UNK
     Route: 065
  8. ADCETRIS [Suspect]
     Active Substance: BRENTUXIMAB VEDOTIN
     Indication: ANAPLASTIC LARGE-CELL LYMPHOMA
     Dosage: 6 CYCLES ADMINISTERED TOTAL; CHP REGIMEN (REDUCED AFTER 2 CYCLES)
     Route: 065
  9. PREDNISONE. [Suspect]
     Active Substance: PREDNISONE
     Indication: T-CELL LYMPHOMA
     Dosage: 6 CYCLES ADMINISTERED TOTAL; CHP REGIMEN
     Route: 065

REACTIONS (4)
  - Weight decreased [Recovered/Resolved]
  - Polyneuropathy [Recovering/Resolving]
  - Decreased appetite [Unknown]
  - Nausea [Unknown]
